FAERS Safety Report 6410478-X (Version None)
Quarter: 2009Q4

REPORT INFORMATION
  Report Type: 
  Country: None (occurrence: None)
  Receive Date: 20091022
  Receipt Date: 20091016
  Transmission Date: 20100525
  Serious: Yes (Other)
  Sender: FDA-Public Use
  Company Number: US-MERCK-0910USA02091M

PATIENT
  Age: 43 Year
  Sex: Female

DRUGS (6)
  1. REBIF [Suspect]
     Indication: MULTIPLE SCLEROSIS
     Route: 058
     Dates: start: 20021113, end: 20090201
  2. COLACE [Suspect]
     Indication: CONSTIPATION
     Route: 065
  3. SINGULAIR [Suspect]
     Indication: ASTHMA
     Route: 048
  4. ALBUTEROL [Suspect]
     Indication: ASTHMA
     Route: 065
  5. VITAMINS (UNSPECIFIED) [Concomitant]
     Indication: ANAEMIA
     Route: 065
  6. IRON (UNSPECIFIED) [Concomitant]
     Indication: ANAEMIA
     Route: 065

REACTIONS (5)
  - CONSTIPATION [None]
  - DRUG EXPOSURE DURING PREGNANCY [None]
  - DRUG EXPOSURE VIA BREAST MILK [None]
  - PREMATURE LABOUR [None]
  - UTERINE LEIOMYOMA [None]
